FAERS Safety Report 9440627 (Version 2)
Quarter: 2013Q3

REPORT INFORMATION
  Report Type: Report from Study
  Country: US (occurrence: US)
  Receive Date: 20130805
  Receipt Date: 20130909
  Transmission Date: 20140515
  Serious: Yes (Hospitalization)
  Sender: FDA-Public Use
  Company Number: US-ACTELION-A-US2013-86414

PATIENT
  Age: 17 Year
  Sex: Female

DRUGS (5)
  1. TRACLEER [Suspect]
     Indication: PULMONARY ARTERIAL HYPERTENSION
     Dosage: UNK
     Route: 048
  2. THEOPHYLLINE [Suspect]
  3. ASPIRIN [Suspect]
  4. ALBUTEROL [Suspect]
  5. SILDENAFIL [Concomitant]

REACTIONS (3)
  - Intentional overdose [Unknown]
  - Syncope [Unknown]
  - Dizziness [Unknown]
